FAERS Safety Report 7822749-0 (Version None)
Quarter: 2011Q4

REPORT INFORMATION
  Report Type: 
  Country: None (occurrence: None)
  Receive Date: 20111018
  Receipt Date: 20111013
  Transmission Date: 20120403
  Serious: Yes (Death, Other)
  Sender: FDA-Public Use
  Company Number: US-AMGEN-US355260

PATIENT
  Age: 65 Year
  Sex: Female

DRUGS (7)
  1. CORTICOSTEROID NOS [Concomitant]
     Dosage: UNK UNK, UNK
     Route: 065
     Dates: start: 20090323
  2. IMMUNOGLOBULINS [Concomitant]
     Route: 042
  3. NPLATE [Suspect]
     Dosage: 500 MUG, UNK
     Dates: start: 20090605, end: 20090702
  4. RITUXIMAB [Concomitant]
     Dosage: UNK UNK, UNK
     Route: 065
     Dates: start: 20090301
  5. NPLATE [Suspect]
     Indication: IDIOPATHIC THROMBOCYTOPENIC PURPURA
     Dosage: 10 MUG/KG, UNK
  6. NPLATE [Suspect]
     Dosage: 1 MUG/KG, QWK
     Route: 058
     Dates: start: 20090410, end: 20090703
  7. NPLATE [Suspect]
     Dates: start: 20090410, end: 20090703

REACTIONS (6)
  - ARRHYTHMIA [None]
  - MYELODYSPLASTIC SYNDROME [None]
  - CARDIAC ARREST [None]
  - DRUG INEFFECTIVE [None]
  - THERAPEUTIC RESPONSE DECREASED [None]
  - ACUTE MYELOID LEUKAEMIA [None]
